FAERS Safety Report 25670263 (Version 2)
Quarter: 2025Q3

REPORT INFORMATION
  Report Type: Spontaneous
  Country: EU (occurrence: EU)
  Receive Date: 20250812
  Receipt Date: 20250816
  Transmission Date: 20251020
  Serious: Yes (Hospitalization, Other)
  Sender: CELLTRION
  Company Number: EU-CELLTRION INC.-2025HU016319

PATIENT

DRUGS (16)
  1. RITUXIMAB [Suspect]
     Active Substance: RITUXIMAB
     Indication: Mantle cell lymphoma
  2. RITUXIMAB [Suspect]
     Active Substance: RITUXIMAB
     Dates: start: 202303
  3. RITUXIMAB [Suspect]
     Active Substance: RITUXIMAB
     Route: 050
     Dates: start: 202303
  4. CYCLOPHOSPHAMIDE\DOXORUBICIN\ETOPOSIDE\PREDNISONE\VINCRISTINE [Suspect]
     Active Substance: CYCLOPHOSPHAMIDE\DOXORUBICIN\ETOPOSIDE\PREDNISONE\VINCRISTINE
     Indication: Mantle cell lymphoma
  5. CISPLATIN\CYTARABINE\DEXAMETHASONE [Suspect]
     Active Substance: CISPLATIN\CYTARABINE\DEXAMETHASONE
     Indication: Mantle cell lymphoma
  6. BENDAMUSTINE [Suspect]
     Active Substance: BENDAMUSTINE
     Indication: Mantle cell lymphoma
     Route: 050
     Dates: start: 202303
  7. BENDAMUSTINE [Suspect]
     Active Substance: BENDAMUSTINE
     Route: 065
  8. IBRUTINIB [Suspect]
     Active Substance: IBRUTINIB
     Indication: Mantle cell lymphoma
     Route: 048
     Dates: start: 202303
  9. IBRUTINIB [Suspect]
     Active Substance: IBRUTINIB
     Route: 065
  10. CYCLOPHOSPHAMIDE [Suspect]
     Active Substance: CYCLOPHOSPHAMIDE
     Indication: Mantle cell lymphoma
     Route: 065
  11. DOXORUBICIN [Suspect]
     Active Substance: DOXORUBICIN
     Indication: Mantle cell lymphoma
     Route: 065
  12. VINCRISTINE [Suspect]
     Active Substance: VINCRISTINE
     Indication: Mantle cell lymphoma
     Route: 065
  13. PREDNISONE [Suspect]
     Active Substance: PREDNISONE
     Indication: Mantle cell lymphoma
     Route: 065
  14. DEXAMETHASONE [Suspect]
     Active Substance: DEXAMETHASONE
     Indication: Mantle cell lymphoma
     Route: 065
  15. CYTARABINE [Suspect]
     Active Substance: CYTARABINE
     Indication: Mantle cell lymphoma
     Route: 065
  16. CISPLATIN [Suspect]
     Active Substance: CISPLATIN
     Indication: Mantle cell lymphoma
     Route: 065

REACTIONS (4)
  - Generalised oedema [Recovering/Resolving]
  - Aspergillus infection [Recovering/Resolving]
  - Fungal infection [Unknown]
  - Off label use [Unknown]
